FAERS Safety Report 8170757-5 (Version None)
Quarter: 2012Q1

REPORT INFORMATION
  Report Type: 
  Country: None (occurrence: None)
  Receive Date: 20120104
  Receipt Date: 20111103
  Transmission Date: 20120608
  Serious: No
  Sender: FDA-Public Use
  Company Number: 2011HGS-002739

PATIENT
  Age: 42 Year
  Sex: Female
  Weight: 77.1115 kg

DRUGS (12)
  1. COUMADIN [Concomitant]
  2. NORCO (VICODIN) (PARACETAMOL, HYDROCODON BITARTRATE) [Concomitant]
  3. ZANTAC [Concomitant]
  4. IMURAN [Concomitant]
  5. LISINOPRIL [Concomitant]
  6. IMITREX (SUMATRIPTAN) (SUMATRIPTAN) [Concomitant]
  7. BENLYSTA [Suspect]
     Indication: SYSTEMIC LUPUS ERYTHEMATOSUS
     Dosage: 1 IN 2 WK, INTRAVENOUS DRIP
     Route: 041
     Dates: start: 20111012, end: 20111026
  8. PRILOSEC (OMEPRAZOLE) (OMEPRAZOLE) [Concomitant]
  9. EFFEXOR XR (VENLAFAXINE HYDROCHLORIDE) (VENLAFAXINE HYDROCHLORIDE) [Concomitant]
  10. FOSAMAX [Concomitant]
  11. NEURONTIN [Concomitant]
  12. MOTRIN OTC (IBUPROFEN) (IBUPROFEN) [Concomitant]

REACTIONS (1)
  - RASH GENERALISED [None]
